FAERS Safety Report 19051288 (Version 1)
Quarter: 2021Q1

REPORT INFORMATION
  Report Type: Spontaneous
  Country: US (occurrence: US)
  Receive Date: 20210324
  Receipt Date: 20210324
  Transmission Date: 20210420
  Serious: Yes (Hospitalization)
  Sender: FDA-Public Use
  Company Number: None

PATIENT
  Age: 51 Year
  Sex: Male
  Weight: 112.5 kg

DRUGS (2)
  1. RIFAXIMIN. [Suspect]
     Active Substance: RIFAXIMIN
     Indication: LIVER DISORDER
     Route: 048
     Dates: start: 20210130, end: 20210323
  2. RIFAXIMIN. [Suspect]
     Active Substance: RIFAXIMIN
     Indication: HEPATIC CIRRHOSIS
     Route: 048
     Dates: start: 20210130, end: 20210323

REACTIONS (2)
  - Rhabdomyoma [None]
  - Muscular weakness [None]

NARRATIVE: CASE EVENT DATE: 20210323
